FAERS Safety Report 8132846-0 (Version None)
Quarter: 2012Q1

REPORT INFORMATION
  Report Type: 
  Country: None (occurrence: None)
  Receive Date: 20120213
  Receipt Date: 20120203
  Transmission Date: 20120608
  Serious: Yes (Other)
  Sender: FDA-Public Use
  Company Number: ES-JNJFOC-20120203738

PATIENT
  Sex: Male

DRUGS (7)
  1. OMEPRAZOLE [Concomitant]
     Indication: GASTROINTESTINAL DISORDER THERAPY
  2. METHOTREXATE [Concomitant]
     Indication: PSORIASIS
     Dates: start: 20110916, end: 20110916
  3. STELARA [Suspect]
     Indication: PSORIASIS
     Route: 058
     Dates: start: 20110308, end: 20111102
  4. ACETAMINOPHEN [Concomitant]
     Indication: PAIN
  5. NAPROXEN [Concomitant]
     Indication: ILL-DEFINED DISORDER
  6. DIAZEPAM [Concomitant]
     Indication: SLEEP DISORDER
  7. ENALAPRIL MALEATE [Concomitant]
     Indication: HYPERTENSION

REACTIONS (1)
  - PROSTATE CANCER [None]
